FAERS Safety Report 4643872-8 (Version None)
Quarter: 2005Q2

REPORT INFORMATION
  Report Type: 
  Country: None (occurrence: None)
  Receive Date: 20050425
  Receipt Date: 20050308
  Transmission Date: 20051028
  Serious: Yes (Hospitalization, Other)
  Sender: FDA-Public Use
  Company Number: US-GLAXOSMITHKLINE-A0548750A

PATIENT
  Age: 25 Year
  Sex: Female
  Weight: 72 kg

DRUGS (1)
  1. SOMINEX [Suspect]
     Dosage: 32TAB SINGLE DOSE
     Route: 048
     Dates: start: 20050303, end: 20050303

REACTIONS (4)
  - FATIGUE [None]
  - HALLUCINATION [None]
  - INTENTIONAL MISUSE [None]
  - OVERDOSE [None]
